FAERS Safety Report 14323846 (Version 1)
Quarter: 2017Q4

REPORT INFORMATION
  Report Type: Report from Study
  Country: AR (occurrence: AR)
  Receive Date: 20171226
  Receipt Date: 20171226
  Transmission Date: 20180321
  Serious: Yes (Other)
  Sender: FDA-Public Use
  Company Number: AR-AEGERION PHARMACEUTICAL, INC-AEGR003507

PATIENT

DRUGS (1)
  1. MYALEPT [Suspect]
     Active Substance: METRELEPTIN
     Indication: PRODUCT USED FOR UNKNOWN INDICATION
     Dosage: UNK
     Dates: start: 2016, end: 2017

REACTIONS (5)
  - Blood triglycerides increased [Unknown]
  - Hyperplasia [Unknown]
  - Blood glucose increased [Unknown]
  - Therapy cessation [Unknown]
  - Colon cancer [Unknown]
